FAERS Safety Report 22160530 (Version 1)
Quarter: 2023Q1

REPORT INFORMATION
  Report Type: Spontaneous
  Country: GB (occurrence: GB)
  Receive Date: 20230331
  Receipt Date: 20230331
  Transmission Date: 20230418
  Serious: Yes (Other)
  Sender: FDA-Public Use
  Company Number: None

PATIENT
  Age: 77 Year
  Sex: Male

DRUGS (1)
  1. VABYSMO [Suspect]
     Active Substance: FARICIMAB-SVOA
     Indication: Product used for unknown indication
     Dosage: 6MG/0.05ML
     Route: 065
     Dates: start: 20230123

REACTIONS (2)
  - Iridocyclitis [Recovered/Resolved]
  - Vitritis [Recovered/Resolved]

NARRATIVE: CASE EVENT DATE: 20230203
